FAERS Safety Report 4299311-2 (Version None)
Quarter: 2004Q1

REPORT INFORMATION
  Report Type: 
  Country: None (occurrence: None)
  Receive Date: 20040217
  Receipt Date: 20040204
  Transmission Date: 20041129
  Serious: Yes (Other)
  Sender: FDA-Public Use
  Company Number: US061547

PATIENT
  Age: 64 Year
  Sex: Male

DRUGS (2)
  1. ENBREL [Suspect]
     Indication: PSORIATIC ARTHROPATHY
     Dosage: SC
     Route: 058
     Dates: start: 20031001, end: 20031201
  2. ANTIHYPERTENSIVE MEDICATION NOS [Concomitant]

REACTIONS (1)
  - AMAUROSIS [None]
